FAERS Safety Report 7054600-3 (Version None)
Quarter: 2010Q4

REPORT INFORMATION
  Report Type: 
  Country: None (occurrence: None)
  Receive Date: 20101015
  Receipt Date: 20100929
  Transmission Date: 20110411
  Serious: Yes (Other)
  Sender: FDA-Public Use
  Company Number: ACO_01983_2010

PATIENT
  Sex: Female

DRUGS (2)
  1. AMPYRA [Suspect]
     Indication: PRODUCT USED FOR UNKNOWN INDICATION
     Dosage: (10 MG QD ORAL) ; (10 MG BID ORAL)
     Route: 048
     Dates: start: 20100701, end: 20100701
  2. AMPYRA [Suspect]
     Indication: PRODUCT USED FOR UNKNOWN INDICATION
     Dosage: (10 MG QD ORAL) ; (10 MG BID ORAL)
     Route: 048
     Dates: start: 20100701, end: 20100701

REACTIONS (4)
  - DIZZINESS [None]
  - FEELING ABNORMAL [None]
  - FORMICATION [None]
  - HYPERSENSITIVITY [None]
